FAERS Safety Report 4596732-5 (Version None)
Quarter: 2005Q1

REPORT INFORMATION
  Report Type: 
  Country: None (occurrence: None)
  Receive Date: 20050302
  Receipt Date: 20050221
  Transmission Date: 20050727
  Serious: Yes (Other)
  Sender: FDA-Public Use
  Company Number: FR-GLAXOSMITHKLINE-B0372333A

PATIENT
  Age: 3 Year
  Sex: Male

DRUGS (2)
  1. SERETIDE DISKUS [Suspect]
     Indication: ASTHMA
     Dosage: 1PUFF TWICE PER DAY
     Route: 055
     Dates: start: 20050118, end: 20050128
  2. ZADITEN [Concomitant]
     Dosage: 1UNIT TWICE PER DAY
     Route: 048
     Dates: start: 20040901

REACTIONS (7)
  - HEADACHE [None]
  - MEDICATION ERROR [None]
  - PYREXIA [None]
  - RESPIRATORY ARREST [None]
  - SNORING [None]
  - TONSILLAR DISORDER [None]
  - TREATMENT NONCOMPLIANCE [None]
